FAERS Safety Report 8092150-6 (Version None)
Quarter: 2012Q1

REPORT INFORMATION
  Report Type: 
  Country: None (occurrence: None)
  Receive Date: 20120129
  Receipt Date: 20111104
  Transmission Date: 20120608
  Serious: No
  Sender: FDA-Public Use
  Company Number: US-ABBOTT-11P-163-0871888-00

PATIENT
  Sex: Female
  Weight: 48.124 kg

DRUGS (6)
  1. HUMIRA [Suspect]
     Indication: ANKYLOSING SPONDYLITIS
     Dates: start: 20110901
  2. PROAIR HFA [Concomitant]
     Indication: ASTHMA
  3. LEXAPRO [Concomitant]
     Indication: DEPRESSION
  4. UNKNOWN MEDICATION [Concomitant]
     Indication: ECZEMA
     Route: 061
  5. SYNTHROID [Concomitant]
     Indication: AUTOIMMUNE THYROIDITIS
  6. BUSPIRONE HCL [Concomitant]
     Indication: PRODUCT USED FOR UNKNOWN INDICATION

REACTIONS (2)
  - PRURITUS [None]
  - SKIN MASS [None]
